FAERS Safety Report 5632420-1 (Version None)
Quarter: 2008Q1

REPORT INFORMATION
  Report Type: 
  Country: None (occurrence: None)
  Receive Date: 20080220
  Receipt Date: 20070816
  Transmission Date: 20080703
  Serious: No
  Sender: FDA-Public Use
  Company Number: US-ASTRAZENECA-2007UW19795

PATIENT
  Age: 78 Year
  Sex: Female
  Weight: 70.3 kg

DRUGS (2)
  1. PLENDIL [Suspect]
     Indication: HYPERTENSION
     Route: 048
     Dates: start: 20010101
  2. SYNTHROID [Concomitant]

REACTIONS (2)
  - DRY MOUTH [None]
  - TOOTH DISORDER [None]
